FAERS Safety Report 6112500-7 (Version None)
Quarter: 2009Q1

REPORT INFORMATION
  Report Type: 
  Country: None (occurrence: None)
  Receive Date: 20090312
  Receipt Date: 20090302
  Transmission Date: 20090719
  Serious: Yes (Hospitalization, Other)
  Sender: FDA-Public Use
  Company Number: PHHY2009AU07783

PATIENT

DRUGS (1)
  1. CLOZARIL [Suspect]
     Dosage: UNK

REACTIONS (3)
  - DRUG LEVEL INCREASED [None]
  - TACHYCARDIA [None]
  - URINARY TRACT INFECTION BACTERIAL [None]
